FAERS Safety Report 23649362 (Version 2)
Quarter: 2024Q2

REPORT INFORMATION
  Report Type: Report from Study
  Country: DE (occurrence: DE)
  Receive Date: 20240319
  Receipt Date: 20240610
  Transmission Date: 20240716
  Serious: Yes (Hospitalization)
  Sender: FDA-Public Use
  Company Number: DE-002147023-NVSC2024DE058385

PATIENT
  Sex: Male

DRUGS (9)
  1. COSENTYX [Suspect]
     Active Substance: SECUKINUMAB
     Indication: Axial spondyloarthritis
     Dosage: 150 MG, Q4W
     Route: 065
     Dates: start: 20210317
  2. CELECOXIB [Concomitant]
     Active Substance: CELECOXIB
     Indication: Axial spondyloarthritis
     Dosage: 200 MG (1DAY/ WEEK)
     Route: 065
     Dates: start: 20211209
  3. FOLIC ACID [Concomitant]
     Active Substance: FOLIC ACID
     Indication: Product used for unknown indication
     Dosage: 5 MG, QD
     Route: 065
  4. HYDROCHLOROTHIAZIDE [Concomitant]
     Active Substance: HYDROCHLOROTHIAZIDE
     Indication: Product used for unknown indication
     Dosage: 12.5 MG, QD
     Route: 065
  5. ATORVASTATIN [Concomitant]
     Active Substance: ATORVASTATIN
     Indication: Product used for unknown indication
     Dosage: 40 MG, QD
     Route: 065
  6. BISOPROLOL [Concomitant]
     Active Substance: BISOPROLOL\BISOPROLOL FUMARATE
     Indication: Product used for unknown indication
     Dosage: 5 MG, BID
     Route: 065
  7. ELIQUIS [Concomitant]
     Active Substance: APIXABAN
     Indication: Product used for unknown indication
     Dosage: 5 MG, BID
     Route: 065
  8. IBUPROFEN [Concomitant]
     Active Substance: IBUPROFEN
     Indication: Product used for unknown indication
     Dosage: 1200 MG
     Route: 065
     Dates: start: 20210101
  9. IBUPROFEN [Concomitant]
     Active Substance: IBUPROFEN
     Dosage: 1200 MG
     Route: 065
     Dates: start: 20210526, end: 20211209

REACTIONS (2)
  - Erysipelas [Recovered/Resolved]
  - Streptococcal bacteraemia [Recovered/Resolved]

NARRATIVE: CASE EVENT DATE: 20230522
